FAERS Safety Report 4304305-4 (Version None)
Quarter: 2004Q1

REPORT INFORMATION
  Report Type: 
  Country: None (occurrence: None)
  Receive Date: 20040223
  Receipt Date: 20040211
  Transmission Date: 20041129
  Serious: Yes (Disabling, Other)
  Sender: FDA-Public Use
  Company Number: GBWYE355617OCT03

PATIENT
  Age: 66 Year
  Sex: Female

DRUGS (2)
  1. PREMARIN [Suspect]
     Indication: HORMONE REPLACEMENT THERAPY
     Dosage: 0.625 MG (FREQUENCY UNSPECIFIED)
     Route: 048
     Dates: start: 20030801, end: 20030923
  2. PREMARIN [Concomitant]

REACTIONS (8)
  - BREAST TENDERNESS [None]
  - CONDITION AGGRAVATED [None]
  - DRUG INEFFECTIVE [None]
  - EYE IRRITATION [None]
  - FLUID RETENTION [None]
  - HOT FLUSH [None]
  - MIGRAINE WITH AURA [None]
  - WEIGHT INCREASED [None]
